FAERS Safety Report 5939692-4 (Version None)
Quarter: 2008Q4

REPORT INFORMATION
  Report Type: 
  Country: None (occurrence: None)
  Receive Date: 20081030
  Receipt Date: 20081030
  Transmission Date: 20090506
  Serious: Yes (Hospitalization)
  Sender: FDA-Public Use
  Company Number: None

PATIENT
  Age: 41 Year
  Sex: Male
  Weight: 200 kg

DRUGS (3)
  1. VANCOMYCIN [Suspect]
     Indication: BURSITIS INFECTIVE
     Dosage: 1G Q12HR IV  : 2G Q6HR IV
     Route: 042
     Dates: start: 20080709, end: 20080712
  2. LISINOPRIL [Concomitant]
  3. IBUPROFEN TABLETS [Concomitant]

REACTIONS (2)
  - BLOOD CREATININE INCREASED [None]
  - RENAL IMPAIRMENT [None]
